FAERS Safety Report 6169106-3 (Version None)
Quarter: 2009Q2

REPORT INFORMATION
  Report Type: 
  Country: None (occurrence: None)
  Receive Date: 20090424
  Receipt Date: 20081205
  Transmission Date: 20091009
  Serious: No
  Sender: FDA-Public Use
  Company Number: ALL1-2008-03486

PATIENT
  Age: 6 Year
  Sex: Male
  Weight: 20.9 kg

DRUGS (2)
  1. VYVANSE [Suspect]
     Indication: ATTENTION DEFICIT/HYPERACTIVITY DISORDER
     Dosage: 1X/DAY:QD (1/4TH OF A 20 MG. CAPSULE), ORAL ; 1X/DAY:QD (1/3TH OF A 20 MG. CAPSULE), ORAL
     Route: 048
     Dates: start: 20081121, end: 20080101
  2. VYVANSE [Suspect]
     Indication: ATTENTION DEFICIT/HYPERACTIVITY DISORDER
     Dosage: 1X/DAY:QD (1/4TH OF A 20 MG. CAPSULE), ORAL ; 1X/DAY:QD (1/3TH OF A 20 MG. CAPSULE), ORAL
     Route: 048
     Dates: start: 20080101, end: 20081204

REACTIONS (4)
  - CHEST PAIN [None]
  - DECREASED APPETITE [None]
  - INSOMNIA [None]
  - WRONG TECHNIQUE IN DRUG USAGE PROCESS [None]
